FAERS Safety Report 19933370 (Version 2)
Quarter: 2021Q4

REPORT INFORMATION
  Report Type: Spontaneous
  Country: MY (occurrence: MY)
  Receive Date: 20211008
  Receipt Date: 20211018
  Transmission Date: 20220303
  Serious: Yes (Other)
  Sender: FDA-Public Use
  Company Number: MY-BOEHRINGERINGELHEIM-2021-BI-131519

PATIENT
  Age: 72 Year
  Sex: Male

DRUGS (1)
  1. JARDIANCE [Suspect]
     Active Substance: EMPAGLIFLOZIN
     Indication: Drug therapy
     Route: 048
     Dates: start: 20210321, end: 202106

REACTIONS (5)
  - Renal impairment [Recovered/Resolved]
  - Polyuria [Recovered/Resolved]
  - Diabetes mellitus inadequate control [Recovered/Resolved]
  - Urine albumin/creatinine ratio increased [Recovered/Resolved]
  - Blood urea increased [Recovered/Resolved]
